FAERS Safety Report 24113158 (Version 1)
Quarter: 2024Q3

REPORT INFORMATION
  Report Type: Spontaneous
  Country: NL (occurrence: NL)
  Receive Date: 20240719
  Receipt Date: 20240719
  Transmission Date: 20241017
  Serious: Yes (Other)
  Sender: ORGANON
  Company Number: None

PATIENT
  Age: 59 Year
  Sex: Male
  Weight: 90 kg

DRUGS (1)
  1. HYZAAR [Suspect]
     Active Substance: HYDROCHLOROTHIAZIDE\LOSARTAN POTASSIUM
     Indication: Hypertension
     Dosage: 1 DOSAGE FORM, PER DAY (QD)
     Dates: start: 20090501

REACTIONS (1)
  - Squamous cell carcinoma [Unknown]
